FAERS Safety Report 5930671-X (Version None)
Quarter: 2008Q4

REPORT INFORMATION
  Report Type: 
  Country: None (occurrence: None)
  Receive Date: 20081007
  Receipt Date: 20041011
  Transmission Date: 20090506
  Serious: Yes (Other)
  Sender: FDA-Public Use
  Company Number: 20040056USST

PATIENT
  Age: 3 Year
  Sex: Male
  Weight: 14.0615 kg

DRUGS (3)
  1. CARNITOR [Suspect]
     Dosage: 1 ML TID, ORAL
     Route: 048
     Dates: start: 20041008, end: 20041010
  2. VALPORIC ACID [Concomitant]
  3. KEPPRA [Concomitant]

REACTIONS (2)
  - ATONIC SEIZURES [None]
  - CONVULSION [None]
